FAERS Safety Report 23457152 (Version 2)
Quarter: 2024Q1

REPORT INFORMATION
  Report Type: Spontaneous
  Country: CZ (occurrence: CZ)
  Receive Date: 20240130
  Receipt Date: 20240212
  Transmission Date: 20240409
  Serious: Yes (Disabling, Other)
  Sender: FDA-Public Use
  Company Number: CZ-TEVA-VS-3141827

PATIENT
  Age: 51 Year
  Sex: Male

DRUGS (9)
  1. DASATINIB [Suspect]
     Active Substance: DASATINIB
     Indication: Chronic myeloid leukaemia
     Dosage: 80 MILLIGRAM, QD
     Route: 065
  2. DASATINIB [Suspect]
     Active Substance: DASATINIB
     Dosage: 40 MILLIGRAM, QD
     Route: 065
  3. IMATINIB [Suspect]
     Active Substance: IMATINIB
     Indication: Chronic myeloid leukaemia
     Dosage: 400 MILLIGRAM, QD
     Route: 065
  4. IMATINIB [Suspect]
     Active Substance: IMATINIB
     Dosage: 200 MILLIGRAM, QD
     Route: 065
  5. IMATINIB [Suspect]
     Active Substance: IMATINIB
     Dosage: 400 MILLIGRAM, QD
     Route: 065
  6. VINBLASTINE [Suspect]
     Active Substance: VINBLASTINE
     Indication: Testicular seminoma (pure)
     Dosage: UNK, VEIP
     Route: 065
  7. ETOPOSIDE [Suspect]
     Active Substance: ETOPOSIDE
     Indication: Testicular seminoma (pure)
     Dosage: UNK, CEB
     Route: 065
  8. ETOPOSIDE [Suspect]
     Active Substance: ETOPOSIDE
     Dosage: UNK, BEP
     Route: 065
  9. ETOPOSIDE [Suspect]
     Active Substance: ETOPOSIDE
     Dosage: UNK, VEIP
     Route: 065

REACTIONS (9)
  - Toxicity to various agents [Unknown]
  - General physical health deterioration [Unknown]
  - Immobile [Unknown]
  - Chronic myeloid leukaemia [Unknown]
  - Pain in extremity [Unknown]
  - Fatigue [Unknown]
  - Headache [Recovered/Resolved]
  - Diarrhoea [Unknown]
  - Treatment failure [Unknown]
